FAERS Safety Report 8494494-2 (Version None)
Quarter: 2012Q2

REPORT INFORMATION
  Report Type: 
  Country: None (occurrence: None)
  Receive Date: 20120627
  Receipt Date: 20120614
  Transmission Date: 20120825
  Serious: Yes (Hospitalization)
  Sender: FDA-Public Use
  Company Number: 1321525

PATIENT
  Age: 57 Year
  Sex: Male

DRUGS (5)
  1. CYCLOPHOSPHAMIDE [Concomitant]
  2. MABTHERA [Concomitant]
  3. METHYLPREDNISOLONE MERCK [Concomitant]
  4. VINCRISTINE SUFLATE [Suspect]
     Indication: PRODUCT USED FOR UNKNOWN INDICATION
     Dosage: INTRAVENOUS (NOT OTHERWISE SPECIFIED)
     Route: 042
     Dates: start: 20120114, end: 20120315
  5. DOXORUBICIN HCL [Concomitant]

REACTIONS (2)
  - NEUROPATHY PERIPHERAL [None]
  - POLYNEUROPATHY [None]
